FAERS Safety Report 4985108-4 (Version None)
Quarter: 2006Q2

REPORT INFORMATION
  Report Type: 
  Country: None (occurrence: None)
  Receive Date: 20060427
  Receipt Date: 20060420
  Transmission Date: 20061013
  Serious: Yes (Hospitalization)
  Sender: FDA-Public Use
  Company Number: DE-ABBOTT-06P-062-0331308-00

PATIENT
  Sex: Female
  Weight: 70 kg

DRUGS (4)
  1. CIPRALEX FILM-COATED TABLETS [Suspect]
     Indication: SUICIDE ATTEMPT
     Route: 048
  2. RISPERIDONE [Suspect]
     Indication: SUICIDE ATTEMPT
     Route: 048
  3. CYMBALTA [Suspect]
     Indication: SUICIDE ATTEMPT
     Route: 048
  4. TRIMIPRAMINE MALEATE [Suspect]
     Indication: SUICIDE ATTEMPT
     Route: 048

REACTIONS (7)
  - ACIDOSIS [None]
  - BOWEL SOUNDS ABNORMAL [None]
  - CONVULSION [None]
  - DEPENDENCE ON RESPIRATOR [None]
  - FATIGUE [None]
  - MULTIPLE DRUG OVERDOSE INTENTIONAL [None]
  - SUICIDE ATTEMPT [None]
